FAERS Safety Report 5273654-8 (Version None)
Quarter: 2007Q1

REPORT INFORMATION
  Report Type: 
  Country: None (occurrence: None)
  Receive Date: 20070321
  Receipt Date: 20070321
  Transmission Date: 20070707
  Serious: Yes (Hospitalization)
  Sender: FDA-Public Use
  Company Number: None

PATIENT
  Age: 66 Year
  Sex: Male
  Weight: 108 kg

DRUGS (8)
  1. ZYVOX [Suspect]
     Indication: INFECTION
     Dosage: 600 MG Q 12 H IV
     Route: 042
     Dates: start: 20070228, end: 20070314
  2. NORVASC [Concomitant]
  3. K-DUR 10 [Concomitant]
  4. PRINIVIL [Concomitant]
  5. ACTOS [Concomitant]
  6. PEPCID [Concomitant]
  7. PROTONIX [Concomitant]
  8. ZOSYN [Concomitant]

REACTIONS (1)
  - THROMBOCYTOPENIA [None]
